FAERS Safety Report 13178342 (Version 2)
Quarter: 2017Q1

REPORT INFORMATION
  Report Type: Spontaneous
  Country: US (occurrence: US)
  Receive Date: 20170202
  Receipt Date: 20170324
  Transmission Date: 20170428
  Serious: No
  Sender: FDA-Public Use
  Company Number: US-009507513-1701USA008467

PATIENT
  Age: 62 Year
  Sex: Female

DRUGS (4)
  1. BELSOMRA [Suspect]
     Active Substance: SUVOREXANT
     Indication: INSOMNIA
     Dosage: SHE TAKES ^ABOUT 20MG MOST NIGHTS^ BUT SHE HAS OCCASIONALLY TAKEN OTHER UNSPECIFIED DOSES, UNK
     Route: 048
     Dates: start: 201701
  2. BELSOMRA [Suspect]
     Active Substance: SUVOREXANT
     Indication: INSOMNIA
     Dosage: SHE TAKES ^ABOUT 20MG MOST NIGHTS^ BUT SHE HAS OCCASIONALLY TAKEN OTHER UNSPECIFIED DOSES, UNK
     Route: 048
     Dates: start: 201701
  3. BELSOMRA [Suspect]
     Active Substance: SUVOREXANT
     Indication: INSOMNIA
     Dosage: SHE TAKES ^ABOUT 20MG MOST NIGHTS^ BUT SHE HAS OCCASIONALLY TAKEN OTHER UNSPECIFIED DOSES, UNK
     Route: 048
     Dates: start: 201701
  4. XANAX [Concomitant]
     Active Substance: ALPRAZOLAM
     Dosage: UNK

REACTIONS (2)
  - Drug ineffective [Unknown]
  - Incorrect dose administered [Unknown]

NARRATIVE: CASE EVENT DATE: 201701
